FAERS Safety Report 24215920 (Version 1)
Quarter: 2024Q3

REPORT INFORMATION
  Report Type: Spontaneous
  Country: US (occurrence: None)
  Receive Date: 20240816
  Receipt Date: 20240816
  Transmission Date: 20241017
  Serious: No
  Sender: OREXO
  Company Number: US-ARIS GLOBAL-ORE202311-000048

PATIENT
  Age: 49 Year
  Sex: Female
  Weight: 49.89 kg

DRUGS (4)
  1. ZUBSOLV [Suspect]
     Active Substance: BUPRENORPHINE HYDROCHLORIDE\NALOXONE HYDROCHLORIDE
     Indication: Drug dependence
     Dosage: UNKNOWN (TOOK ONLY ONE TABLET)
     Route: 060
     Dates: start: 20231102, end: 20231102
  2. WELLBUTRIN [Concomitant]
     Active Substance: BUPROPION HYDROCHLORIDE
     Indication: Anxiety
     Dosage: 150 MG
     Route: 048
  3. CLONAZEPAM [Concomitant]
     Active Substance: CLONAZEPAM
     Indication: Seasonal allergy
     Dosage: ONE SPRAY
     Route: 045
  4. VITAMIN D [Concomitant]
     Active Substance: VITAMIN D NOS
     Indication: Vitamin D decreased
     Dosage: 50 MCG (TWO TABLETS)
     Route: 048

REACTIONS (3)
  - Lip erythema [Recovered/Resolved]
  - Oral discomfort [Recovered/Resolved]
  - Wrong technique in product usage process [Unknown]

NARRATIVE: CASE EVENT DATE: 20231102
